FAERS Safety Report 7767677-4 (Version None)
Quarter: 2011Q3

REPORT INFORMATION
  Report Type: 
  Country: None (occurrence: None)
  Receive Date: 20110922
  Receipt Date: 20110920
  Transmission Date: 20111222
  Serious: Yes (Other)
  Sender: FDA-Public Use
  Company Number: BR-PFIZER INC-2011223987

PATIENT
  Age: 44 Year
  Sex: Female

DRUGS (1)
  1. LIPITOR [Suspect]
     Dosage: 20 MG PER DAY
     Route: 048
     Dates: start: 20091123, end: 20091204

REACTIONS (4)
  - OEDEMA MOUTH [None]
  - SWELLING FACE [None]
  - EYE SWELLING [None]
  - HYPERSENSITIVITY [None]
